FAERS Safety Report 16849809 (Version 1)
Quarter: 2019Q4

REPORT INFORMATION
  Report Type: Spontaneous
  Country: US (occurrence: US)
  Receive Date: 20190925
  Receipt Date: 20190925
  Transmission Date: 20200122
  Serious: Yes (Other)
  Sender: FDA-Public Use
  Company Number: None

PATIENT
  Age: 6 Year
  Sex: Male
  Weight: 22.5 kg

DRUGS (6)
  1. MONTELUKAST [Suspect]
     Active Substance: MONTELUKAST SODIUM
     Indication: ASTHMA
     Dosage: ?          QUANTITY:1 TABLET(S);?
     Route: 048
     Dates: start: 20140901, end: 20190310
  2. HYDROXYZINE [Concomitant]
     Active Substance: HYDROXYZINE HYDROCHLORIDE
  3. FLUTICASONE PROPIONATE. [Concomitant]
     Active Substance: FLUTICASONE PROPIONATE
  4. LORATIDINE [Concomitant]
     Active Substance: LORATADINE
  5. MONTELUKAST [Suspect]
     Active Substance: MONTELUKAST SODIUM
     Indication: MULTIPLE ALLERGIES
     Dosage: ?          QUANTITY:1 TABLET(S);?
     Route: 048
     Dates: start: 20140901, end: 20190310
  6. FLOVENT [Concomitant]
     Active Substance: FLUTICASONE PROPIONATE

REACTIONS (3)
  - Influenza like illness [None]
  - Withdrawal syndrome [None]
  - Eye disorder [None]

NARRATIVE: CASE EVENT DATE: 20190311
